FAERS Safety Report 14439902 (Version 1)
Quarter: 2018Q1

REPORT INFORMATION
  Report Type: Spontaneous
  Country: US (occurrence: US)
  Receive Date: 20180125
  Receipt Date: 20180125
  Transmission Date: 20180509
  Serious: Yes (Hospitalization, Other)
  Sender: FDA-Public Use
  Company Number: US-PRINSTON PHARMACEUTICAL INC.-2018PRN00016

PATIENT
  Age: 54 Year
  Sex: Female
  Weight: 60.32 kg

DRUGS (8)
  1. ASPIRIN. [Concomitant]
     Active Substance: ASPIRIN
     Dosage: 81 MG, 1X/DAY
  2. LISINOPRIL. [Suspect]
     Active Substance: LISINOPRIL
     Dosage: 10 MG, 1X/DAY
     Route: 048
     Dates: start: 20180110
  3. METOPROLOL. [Concomitant]
     Active Substance: METOPROLOL
     Dosage: 25 MG, 2X/DAY
     Route: 048
  4. LATANOPROST. [Concomitant]
     Active Substance: LATANOPROST
     Dosage: 1 GTT EACH EYE, 1X/DAY
     Route: 047
  5. LEVEMIR [Concomitant]
     Active Substance: INSULIN DETEMIR
     Dosage: 40 U, 2X/DAY
  6. PRAVASTATIN. [Concomitant]
     Active Substance: PRAVASTATIN
     Dosage: 40 MG, 1X/DAY
  7. LISINOPRIL. [Suspect]
     Active Substance: LISINOPRIL
     Indication: HYPERTENSION
     Dosage: 10 MG, 1X/DAY
     Route: 048
     Dates: start: 20171214, end: 20180106
  8. HUMALOG [Concomitant]
     Active Substance: INSULIN LISPRO
     Dosage: 18 U, 3X/DAY

REACTIONS (4)
  - Mobility decreased [Not Recovered/Not Resolved]
  - Fall [Unknown]
  - Patella fracture [Not Recovered/Not Resolved]
  - Hyponatraemia [Recovered/Resolved]

NARRATIVE: CASE EVENT DATE: 201801
